FAERS Safety Report 5970034-4 (Version None)
Quarter: 2008Q4

REPORT INFORMATION
  Report Type: 
  Country: None (occurrence: None)
  Receive Date: 20081126
  Receipt Date: 20081117
  Transmission Date: 20090506
  Serious: Yes (Other)
  Sender: FDA-Public Use
  Company Number: US-AMGEN-US150585

PATIENT
  Sex: Male

DRUGS (1)
  1. ENBREL [Suspect]
     Indication: PSORIASIS
     Dates: start: 20040501, end: 20050501

REACTIONS (4)
  - ALOPECIA TOTALIS [None]
  - ALOPECIA UNIVERSALIS [None]
  - MENTAL DISORDER [None]
  - STRESS [None]
